FAERS Safety Report 16993083 (Version 1)
Quarter: 2019Q4

REPORT INFORMATION
  Report Type: Spontaneous
  Country: JP (occurrence: JP)
  Receive Date: 20191105
  Receipt Date: 20191105
  Transmission Date: 20200122
  Serious: Yes (Other)
  Sender: FDA-Public Use
  Company Number: JP-CELLTRION INC.-2019JP026009

PATIENT

DRUGS (1)
  1. INFLIXIMAB (UNKNOWN) [Suspect]
     Active Substance: INFLIXIMAB
     Indication: PSORIATIC ARTHROPATHY
     Dosage: 5 MG/KG AT WEEKS 0,2,4 AND 12, THEN EVERY 8 WEEKS AFTER THE FOURTH DOSE

REACTIONS (4)
  - Product use issue [Unknown]
  - Iridocyclitis [Recovered/Resolved]
  - Pyoderma gangrenosum [Recovering/Resolving]
  - Infusion related reaction [Unknown]
